FAERS Safety Report 12364017 (Version 1)
Quarter: 2016Q2

REPORT INFORMATION
  Report Type: Spontaneous
  Country: US (occurrence: US)
  Receive Date: 20160512
  Receipt Date: 20160512
  Transmission Date: 20160815
  Serious: Yes (Hospitalization, Other)
  Sender: FDA-Public Use
  Company Number: ADR-2015-01261

PATIENT
  Age: 49 Year
  Sex: Female

DRUGS (5)
  1. ULTRAM [Suspect]
     Active Substance: TRAMADOL HYDROCHLORIDE
     Route: 048
  2. LIORESAL [Suspect]
     Active Substance: BACLOFEN
     Dosage: 99.92MCG/DAY
     Route: 037
     Dates: start: 20150619
  3. LYRICA [Suspect]
     Active Substance: PREGABALIN
  4. TOPAMAX [Suspect]
     Active Substance: TOPIRAMATE
  5. BACLOFEN. [Suspect]
     Active Substance: BACLOFEN
     Route: 048

REACTIONS (3)
  - Overdose [Unknown]
  - Mental status changes [Unknown]
  - Unresponsive to stimuli [Unknown]
